FAERS Safety Report 15513456 (Version 1)
Quarter: 2018Q4

REPORT INFORMATION
  Report Type: Spontaneous
  Country: US (occurrence: US)
  Receive Date: 20181017
  Receipt Date: 20181017
  Transmission Date: 20190205
  Serious: Yes (Death)
  Sender: FDA-Public Use
  Company Number: None

PATIENT
  Age: 78 Year
  Sex: Female

DRUGS (2)
  1. ALENDRONATE SODIUM TABLET [Suspect]
     Active Substance: ALENDRONATE SODIUM
  2. SIMVASTATIN TABLET [Suspect]
     Active Substance: SIMVASTATIN

REACTIONS (1)
  - Death [None]
